FAERS Safety Report 22029822 (Version 1)
Quarter: 2023Q1

REPORT INFORMATION
  Report Type: Spontaneous
  Country: FR (occurrence: FR)
  Receive Date: 20230223
  Receipt Date: 20230223
  Transmission Date: 20230417
  Serious: Yes (Hospitalization, Other)
  Sender: FDA-Public Use
  Company Number: FR-SA-2023SA048218

PATIENT
  Age: 70 Year
  Sex: Female

DRUGS (1)
  1. PANTOPRAZOLE [Suspect]
     Active Substance: PANTOPRAZOLE
     Indication: Gastritis
     Dosage: UNK
     Route: 065

REACTIONS (9)
  - Tubulointerstitial nephritis [Recovering/Resolving]
  - Peripheral sensory neuropathy [Recovering/Resolving]
  - Hypokalaemia [Recovering/Resolving]
  - Normocytic anaemia [Unknown]
  - Fatigue [Unknown]
  - Hypomagnesaemia [Recovering/Resolving]
  - Hyponatraemia [Recovering/Resolving]
  - Axonal neuropathy [Recovering/Resolving]
  - Hypoaesthesia [Recovering/Resolving]
